FAERS Safety Report 19710731 (Version 1)
Quarter: 2021Q3

REPORT INFORMATION
  Report Type: Spontaneous
  Country: CN (occurrence: CN)
  Receive Date: 20210817
  Receipt Date: 20210817
  Transmission Date: 20211014
  Serious: Yes (Death, Hospitalization, Other)
  Sender: FDA-Public Use
  Company Number: CN-AMGEN-CHNSP2021125281

PATIENT
  Age: 56 Year
  Sex: Male

DRUGS (10)
  1. METHYLPREDNISOLONE [METHYLPREDNISOLONE ACETATE] [Concomitant]
     Active Substance: METHYLPREDNISOLONE ACETATE
     Indication: PRODUCT USED FOR UNKNOWN INDICATION
     Dosage: 160 MILLIGRAM, USED FOR THE FIRST 3 DAYS
     Route: 042
  2. FOLINIC ACID [Suspect]
     Active Substance: LEUCOVORIN
     Indication: COLON CANCER
     Dosage: UNK, SEVEN CYCLES AFTER THE OPERATION
     Route: 065
  3. IRINOTECAN [Suspect]
     Active Substance: IRINOTECAN
     Indication: COLON CANCER
     Dosage: UNK, SEVEN CYCLES AFTER THE OPERATION
     Route: 065
  4. NIVOLUMAB [Concomitant]
     Active Substance: NIVOLUMAB
     Indication: PRODUCT USED FOR UNKNOWN INDICATION
     Dosage: 140 MILLIGRAM, QD, RECEIVED SIX CYCLES
  5. PANTOLOC CONTROL [Concomitant]
     Active Substance: PANTOPRAZOLE SODIUM
     Indication: PRODUCT USED FOR UNKNOWN INDICATION
     Dosage: 40 MILLIGRAM, DAILY ORALLY
  6. METHYLPREDNISOLONE [METHYLPREDNISOLONE ACETATE] [Concomitant]
     Active Substance: METHYLPREDNISOLONE ACETATE
     Dosage: 36 UNK
     Route: 048
  7. PANITUMUMAB [Suspect]
     Active Substance: PANITUMUMAB
     Indication: COLON CANCER
     Dosage: SEVEN CYCLES AFTER THE OPERATION
     Route: 065
  8. METOPROLOL SUCCINATE. [Concomitant]
     Active Substance: METOPROLOL SUCCINATE
     Indication: PRODUCT USED FOR UNKNOWN INDICATION
     Dosage: 23.75 MILLIGRAM, TWICE DAILY ORALLY
     Route: 048
  9. FLUOROURACIL. [Suspect]
     Active Substance: FLUOROURACIL
     Indication: COLON CANCER
     Dosage: UNK, SEVEN CYCLES AFTER THE OPERATION
     Route: 065
  10. METHYLPREDNISOLONE [METHYLPREDNISOLONE ACETATE] [Concomitant]
     Active Substance: METHYLPREDNISOLONE ACETATE
     Dosage: 80 UNK
     Route: 042

REACTIONS (6)
  - Metastases to lung [Recovering/Resolving]
  - Klebsiella infection [Recovering/Resolving]
  - Anuria [Recovered/Resolved]
  - Metastases to liver [Recovering/Resolving]
  - Death [Fatal]
  - Myocarditis [Recovering/Resolving]

NARRATIVE: CASE EVENT DATE: 2018
